FAERS Safety Report 10333787 (Version 2)
Quarter: 2014Q3

REPORT INFORMATION
  Report Type: Spontaneous
  Country: US (occurrence: US)
  Receive Date: 20140723
  Receipt Date: 20140723
  Transmission Date: 20150326
  Serious: No
  Sender: FDA-Public Use
  Company Number: US-UNITED THERAPEUTICS-UTC-046179

PATIENT
  Sex: Female
  Weight: 65.77 kg

DRUGS (2)
  1. REMODULIN [Suspect]
     Active Substance: TREPROSTINIL
     Route: 058
     Dates: start: 20131220
  2. ADCIRCA [Concomitant]
     Active Substance: TADALAFIL

REACTIONS (12)
  - Dizziness [Unknown]
  - Influenza like illness [Unknown]
  - Tremor [Unknown]
  - Chills [Unknown]
  - Pain [Unknown]
  - Heart rate increased [Unknown]
  - Fatigue [Unknown]
  - Pain in extremity [Unknown]
  - Headache [Unknown]
  - Flushing [Unknown]
  - Arthritis [Unknown]
  - Scleroderma [Unknown]

NARRATIVE: CASE EVENT DATE: 2014
